FAERS Safety Report 6004325-8 (Version None)
Quarter: 2008Q4

REPORT INFORMATION
  Report Type: 
  Country: None (occurrence: None)
  Receive Date: 20081215
  Receipt Date: 20081215
  Transmission Date: 20090506
  Serious: Yes (Life-Threatening)
  Sender: FDA-Public Use
  Company Number: None

PATIENT
  Age: 45 Year
  Sex: Female
  Weight: 139 kg

DRUGS (7)
  1. OMNIPAQUE 140 [Suspect]
     Indication: PERCUTANEOUS CORONARY INTERVENTION
     Dosage: 165 ML ONCE IV
     Route: 042
     Dates: start: 20081211, end: 20081211
  2. LOVENOX [Concomitant]
  3. HEPARIN [Concomitant]
  4. INTEGRILIN [Concomitant]
  5. CLOPIDOGREL [Concomitant]
  6. LIDOCAINE [Concomitant]
  7. EPTIFIBATIDE [Concomitant]

REACTIONS (3)
  - ANGIOEDEMA [None]
  - DYSPNOEA [None]
  - STRIDOR [None]
